FAERS Safety Report 8605071-4 (Version None)
Quarter: 2012Q3

REPORT INFORMATION
  Report Type: 
  Country: None (occurrence: None)
  Receive Date: 20120820
  Receipt Date: 20120809
  Transmission Date: 20120928
  Serious: Yes (Other)
  Sender: FDA-Public Use
  Company Number: US-JNJFOC-20120401683

PATIENT
  Sex: Male
  Weight: 115.67 kg

DRUGS (5)
  1. HUMIRA [Suspect]
     Indication: RHEUMATOID ARTHRITIS
     Route: 058
     Dates: start: 20120101
  2. REMICADE [Suspect]
     Dosage: DOSE:3 (UNITS UNSPECIFIED)
     Route: 042
     Dates: start: 20120320, end: 20120320
  3. REMICADE [Suspect]
     Indication: ARTHRITIS
     Dosage: DOSE:3 (UNITS UNSPECIFIED)
     Route: 042
     Dates: start: 20120320, end: 20120320
  4. REMICADE [Suspect]
     Dosage: DOSE:3 (UNITS UNSPECIFIED)
     Route: 042
     Dates: start: 20110901
  5. REMICADE [Suspect]
     Indication: RHEUMATOID ARTHRITIS
     Dosage: DOSE:3 (UNITS UNSPECIFIED)
     Route: 042
     Dates: start: 20110901

REACTIONS (22)
  - ASPARTATE AMINOTRANSFERASE INCREASED [None]
  - DECREASED APPETITE [None]
  - PARAESTHESIA [None]
  - HYPERSENSITIVITY [None]
  - BLOOD GLUCOSE INCREASED [None]
  - ALANINE AMINOTRANSFERASE INCREASED [None]
  - MEAN CELL HAEMOGLOBIN INCREASED [None]
  - FATIGUE [None]
  - INSOMNIA [None]
  - ABNORMAL LOSS OF WEIGHT [None]
  - MEAN PLATELET VOLUME INCREASED [None]
  - WEIGHT DECREASED [None]
  - DYSPNOEA [None]
  - LETHARGY [None]
  - BLOOD TESTOSTERONE INCREASED [None]
  - MEMORY IMPAIRMENT [None]
  - FLUSHING [None]
  - PRESYNCOPE [None]
  - LYMPHOCYTE PERCENTAGE DECREASED [None]
  - VISION BLURRED [None]
  - INFUSION RELATED REACTION [None]
  - ASTHENIA [None]
